FAERS Safety Report 4838190-9 (Version None)
Quarter: 2005Q4

REPORT INFORMATION
  Report Type: 
  Country: None (occurrence: None)
  Receive Date: 20051122
  Receipt Date: 20051115
  Transmission Date: 20060501
  Serious: Yes (Disabling)
  Sender: FDA-Public Use
  Company Number: USA-2005-0021828

PATIENT
  Age: 28 Year
  Sex: Male

DRUGS (4)
  1. CEFDITOREN PIVOXIL (SIMILAR TO NDA 21-222) (CEFDITOREN PIVOXIL) OTHER [Suspect]
     Dosage: ORAL
     Route: 048
     Dates: start: 20050905
  2. PELEX (CHLORPHENAMINE MALEATE, SALICYLAMIDE) [Concomitant]
     Dosage: 3 GRAM, DAILY, ORAL
     Route: 048
     Dates: start: 20050608, end: 20050612
  3. LOXONIN (LOXOPROFEN SODIUM) [Suspect]
     Dosage: 120 MG, DAILY, ORAL
     Route: 048
     Dates: start: 20050608, end: 20050612
  4. P MAGEN (ALUMINIUM SILICATE, CALCIUM CARBONATE, DIASTASE, HERBAL EXTRA [Suspect]
     Dosage: 3 GRAM, DAILY, ORAL
     Route: 048
     Dates: start: 20050608, end: 20050612

REACTIONS (4)
  - DERMATITIS [None]
  - MOUTH ULCERATION [None]
  - PHARYNGOLARYNGEAL PAIN [None]
  - STEVENS-JOHNSON SYNDROME [None]
